FAERS Safety Report 17436199 (Version 1)
Quarter: 2020Q1

REPORT INFORMATION
  Report Type: Spontaneous
  Country: CN (occurrence: CN)
  Receive Date: 20200219
  Receipt Date: 20200219
  Transmission Date: 20200409
  Serious: Yes (Death, Other)
  Sender: FDA-Public Use
  Company Number: CN-PFIZER INC-2020023997

PATIENT
  Age: 77 Year
  Sex: Female

DRUGS (2)
  1. CELEBREX [Suspect]
     Active Substance: CELECOXIB
     Indication: PAIN
     Dosage: 1 DF, UNK
     Route: 048
     Dates: start: 20191210, end: 20191210
  2. CELEBREX [Suspect]
     Active Substance: CELECOXIB
     Dosage: 1 DF, UNK
     Route: 048
     Dates: start: 20191213, end: 20191213

REACTIONS (2)
  - Drug eruption [Unknown]
  - Death [Fatal]

NARRATIVE: CASE EVENT DATE: 20191213
